FAERS Safety Report 21472830 (Version 1)
Quarter: 2022Q4

REPORT INFORMATION
  Report Type: Spontaneous
  Country: IN (occurrence: IN)
  Receive Date: 20221018
  Receipt Date: 20221018
  Transmission Date: 20230113
  Serious: Yes (Other)
  Sender: FDA-Public Use
  Company Number: IN-PFIZER INC-202101134658

PATIENT
  Age: 52 Year
  Sex: Female

DRUGS (2)
  1. PALBOCICLIB [Suspect]
     Active Substance: PALBOCICLIB
     Indication: Breast cancer metastatic
     Dosage: 125 MG, 1X/DAY
     Route: 048
     Dates: start: 20210614
  2. FULVESTRANT [Concomitant]
     Active Substance: FULVESTRANT
     Indication: Breast cancer metastatic
     Dosage: 250 MG
     Route: 030

REACTIONS (8)
  - Hepatitis [Unknown]
  - Back pain [Unknown]
  - Abdominal pain upper [Recovered/Resolved]
  - Oropharyngeal pain [Recovered/Resolved]
  - Haemoglobin decreased [Unknown]
  - Blood glucose increased [Unknown]
  - Blood uric acid increased [Unknown]
  - Neoplasm progression [Unknown]

NARRATIVE: CASE EVENT DATE: 20220731
